FAERS Safety Report 5512616-X (Version None)
Quarter: 2007Q4

REPORT INFORMATION
  Report Type: 
  Country: None (occurrence: None)
  Receive Date: 20071112
  Receipt Date: 20071030
  Transmission Date: 20080405
  Serious: Yes (Other)
  Sender: FDA-Public Use
  Company Number: ZA-SOLVAY-00207034799

PATIENT
  Age: 695 Month
  Sex: Female
  Weight: 107 kg

DRUGS (6)
  1. METHOTREXATE [Concomitant]
     Indication: ILL-DEFINED DISORDER
     Dosage: DAILY DOSE:  UNKNOWN
     Route: 065
  2. PREXUM [Suspect]
     Indication: ILL-DEFINED DISORDER
     Dosage: DAILY DOSE: 4 MILLIGRAM(S)
     Route: 048
     Dates: start: 20070701, end: 20070801
  3. PREXUM [Suspect]
     Dosage: DAILY DOSE:  UNKNOWN
     Route: 048
     Dates: start: 20070901
  4. PREDNISONE [Concomitant]
     Indication: ILL-DEFINED DISORDER
     Dosage: DAILY DOSE:  UNKNOWN
     Route: 065
  5. NAFASOL [Concomitant]
     Indication: ILL-DEFINED DISORDER
     Dosage: DAILY DOSE:  UNKNOWN
     Route: 065
  6. PURESIS [Concomitant]
     Indication: ILL-DEFINED DISORDER
     Dosage: DAILY DOSE:  UNKNOWN
     Route: 065

REACTIONS (2)
  - BALANCE DISORDER [None]
  - CONVULSION [None]
